FAERS Safety Report 16356349 (Version 1)
Quarter: 2019Q2

REPORT INFORMATION
  Report Type: Spontaneous
  Country: US (occurrence: US)
  Receive Date: 20190527
  Receipt Date: 20190527
  Transmission Date: 20190711
  Serious: No
  Sender: FDA-Public Use
  Company Number: US-TEVA-2019-US-1052779

PATIENT
  Age: 23 Year
  Sex: Female

DRUGS (1)
  1. ALL TRANS-RETINOIC ACID [Suspect]
     Active Substance: TRETINOIN
     Indication: DISSEMINATED INTRAVASCULAR COAGULATION
     Route: 065

REACTIONS (1)
  - Maternal exposure during pregnancy [Unknown]
